FAERS Safety Report 25439606 (Version 1)
Quarter: 2025Q2

REPORT INFORMATION
  Report Type: Spontaneous
  Country: US (occurrence: None)
  Receive Date: 20250613
  Receipt Date: 20250613
  Transmission Date: 20250717
  Serious: Yes (Other)
  Sender: FDA-CTU
  Company Number: None

PATIENT
  Age: 29 Year
  Sex: Male
  Weight: 66.6 kg

DRUGS (2)
  1. CABOTEGRAVIR [Suspect]
     Active Substance: CABOTEGRAVIR
     Indication: Prophylaxis against HIV infection
     Route: 030
     Dates: start: 20241216
  2. PreP [Concomitant]

REACTIONS (9)
  - Injection site pain [None]
  - Injection site swelling [None]
  - Dysmetria [None]
  - Gait disturbance [None]
  - Pain in extremity [None]
  - Arthralgia [None]
  - Gait disturbance [None]
  - Product administered at inappropriate site [None]
  - Wrong technique in product usage process [None]

NARRATIVE: CASE EVENT DATE: 20250606
